FAERS Safety Report 7692129-X (Version None)
Quarter: 2011Q3

REPORT INFORMATION
  Report Type: 
  Country: None (occurrence: None)
  Receive Date: 20110818
  Receipt Date: 20110811
  Transmission Date: 20111222
  Serious: Yes (Hospitalization, Other)
  Sender: FDA-Public Use
  Company Number: US-BAYER-201035485NA

PATIENT
  Age: 25 Year
  Sex: Female
  Weight: 59 kg

DRUGS (6)
  1. BUTALBITAL, ASPIRIN, AND CAFFEINE [Concomitant]
  2. BUPROPION HCL [Concomitant]
     Dosage: 150 MG, UNK
  3. METFORMIN [Concomitant]
  4. GLYBURIDE [Concomitant]
     Dosage: 2.5 MG, UNK
  5. YAZ [Suspect]
     Indication: CONTRACEPTION
     Route: 048
     Dates: start: 20080901, end: 20090101
  6. DICLOFENAC POTASSIUM [Concomitant]
     Dosage: 50 MG, UNK

REACTIONS (4)
  - ASTHENIA [None]
  - CEREBROVASCULAR ACCIDENT [None]
  - ISCHAEMIC STROKE [None]
  - PAIN [None]
